FAERS Safety Report 11423600 (Version 1)
Quarter: 2015Q3

REPORT INFORMATION
  Report Type: Spontaneous
  Country: US (occurrence: US)
  Receive Date: 20150827
  Receipt Date: 20150827
  Transmission Date: 20151125
  Serious: No
  Sender: FDA-Public Use
  Company Number: US-JNJFOC-20150518525

PATIENT
  Age: 72 Year
  Sex: Female
  Weight: 73.03 kg

DRUGS (2)
  1. MOTRIN IB [Suspect]
     Active Substance: IBUPROFEN
     Route: 048
  2. MOTRIN IB [Suspect]
     Active Substance: IBUPROFEN
     Indication: PAIN
     Route: 048
     Dates: end: 20150524

REACTIONS (3)
  - Inappropriate schedule of drug administration [Unknown]
  - Expired product administered [Unknown]
  - Product commingling [Unknown]
